FAERS Safety Report 6531821-7 (Version None)
Quarter: 2010Q1

REPORT INFORMATION
  Report Type: 
  Country: None (occurrence: None)
  Receive Date: 20100107
  Receipt Date: 20100107
  Transmission Date: 20100710
  Serious: Yes (Other)
  Sender: FDA-Public Use
  Company Number: None

PATIENT
  Age: 44 Year
  Sex: Female
  Weight: 58.9676 kg

DRUGS (1)
  1. LORATADINE 10MG NOVARTIS CONSUMER HEALTH [Suspect]
     Indication: MULTIPLE ALLERGIES
     Dosage: 1 TABLET DAILY PO
     Route: 048

REACTIONS (5)
  - HEADACHE [None]
  - HYPERTENSION [None]
  - METRORRHAGIA [None]
  - PURPURA [None]
  - VASCULAR RUPTURE [None]
